FAERS Safety Report 17751255 (Version 1)
Quarter: 2020Q2

REPORT INFORMATION
  Report Type: Spontaneous
  Country: US (occurrence: US)
  Receive Date: 20200506
  Receipt Date: 20200506
  Transmission Date: 20200714
  Serious: Yes (Hospitalization, Other)
  Sender: FDA-Public Use
  Company Number: US-IBIGEN-2020.08719

PATIENT
  Sex: Male

DRUGS (10)
  1. HIDROCORTISONE [Suspect]
     Active Substance: HYDROCORTISONE
     Indication: BLOOD PRESSURE MANAGEMENT
     Dosage: (STRESS-DOSE)
  2. PHENOBARBITAL. [Suspect]
     Active Substance: PHENOBARBITAL
     Indication: SEIZURE
     Dosage: (VIA THE LEFT HAND)
     Route: 042
  3. DEXTROSE. [Suspect]
     Active Substance: DEXTROSE
     Dosage: (10%) IN WATER (VIA THE LEFT HAND)
     Route: 042
  4. LEVETIRACETAM. [Suspect]
     Active Substance: LEVETIRACETAM
     Indication: SEIZURE
     Dosage: (VIA THE LEFT HAND)
     Route: 042
  5. MIDAZOLAM. [Suspect]
     Active Substance: MIDAZOLAM
     Indication: AGITATION
     Dosage: (VIA THE LEFT HAND)
     Route: 042
  6. AMPICILLIN [Suspect]
     Active Substance: AMPICILLIN
     Indication: EVIDENCE BASED TREATMENT
     Dosage: VIA THE LEFT HAND
     Route: 042
  7. DOPAMINE [Suspect]
     Active Substance: DOPAMINE HYDROCHLORIDE
     Indication: BLOOD PRESSURE MANAGEMENT
     Dosage: (VIA THE LEFT HAND)
     Route: 042
  8. SODIUM CHLORIDE. [Suspect]
     Active Substance: SODIUM CHLORIDE
     Dosage: (VIA THE LEFT HAND)
     Route: 042
  9. CALCIUM GLUCONATE. [Suspect]
     Active Substance: CALCIUM GLUCONATE
     Indication: THERAPEUTIC HYPOTHERMIA
     Dosage: PERIPHERAL INTRAVENOUS ADMINISTRATION IN THE LEFT HAND
     Route: 042
  10. GENTAMICIN. [Suspect]
     Active Substance: GENTAMICIN
     Indication: EVIDENCE BASED TREATMENT
     Dosage: VIA THE LEFT HAND
     Route: 042

REACTIONS (15)
  - Vascular calcification [Recovered/Resolved]
  - Encephalopathy [Unknown]
  - Skull fracture [Unknown]
  - Peripheral swelling [Unknown]
  - Hypercalcaemia [Unknown]
  - Hypotension [Unknown]
  - Cutaneous calcification [Recovered/Resolved]
  - Haematocrit decreased [Unknown]
  - Agitation [Unknown]
  - Scab [Unknown]
  - Seizure [Recovered/Resolved]
  - Myositis [Unknown]
  - Skin mass [Unknown]
  - Brain oedema [Unknown]
  - Subgaleal haemorrhage [Unknown]
